FAERS Safety Report 6734503-1 (Version None)
Quarter: 2010Q2

REPORT INFORMATION
  Report Type: 
  Country: None (occurrence: None)
  Receive Date: 20100513
  Receipt Date: 20090911
  Transmission Date: 20101027
  Serious: Yes (Other)
  Sender: FDA-Public Use
  Company Number: 2009SP025248

PATIENT
  Age: 66 Year
  Sex: Male

DRUGS (6)
  1. ZEMURON [Suspect]
     Indication: INDUCTION OF ANAESTHESIA
     Dosage: 50 MG;     ;INBO
     Dates: start: 20090904
  2. ZEMURON [Suspect]
  3. ZEMURON [Suspect]
  4. ZEMURON [Suspect]
  5. VANCOMYCIN [Concomitant]
  6. ZEMURON [Suspect]

REACTIONS (3)
  - BRONCHOSPASM [None]
  - HYPOTENSION [None]
  - RASH [None]
